FAERS Safety Report 5092894-4 (Version None)
Quarter: 2006Q3

REPORT INFORMATION
  Report Type: 
  Country: None (occurrence: None)
  Receive Date: 20060727
  Receipt Date: 20060407
  Transmission Date: 20061208
  Serious: Yes (Hospitalization)
  Sender: FDA-Public Use
  Company Number: FACT0600205

PATIENT
  Age: 47 Year
  Sex: Female
  Weight: 104.3 kg

DRUGS (2)
  1. FACTIVE [Suspect]
     Indication: RESPIRATORY TRACT INFECTION BACTERIAL
     Dosage: 320 MG,QD, ORAL
     Route: 048
     Dates: start: 20060317, end: 20060319
  2. OSELTAMIVIR PHOSPHATE (OSELTAMIVIR PHOSPHATE) [Suspect]
     Indication: PNEUMONIA
     Dosage: 75 MG, BID, ORAL
     Route: 048
     Dates: start: 20060315, end: 20060319

REACTIONS (2)
  - DRUG INEFFECTIVE [None]
  - PNEUMONIA [None]
